FAERS Safety Report 6268364-4 (Version None)
Quarter: 2009Q3

REPORT INFORMATION
  Report Type: 
  Country: None (occurrence: None)
  Receive Date: 20090713
  Receipt Date: 20090713
  Transmission Date: 20100115
  Serious: Yes (Life-Threatening, Other)
  Sender: FDA-Public Use
  Company Number: None

PATIENT
  Age: 35 Year
  Sex: Female
  Weight: 88.4514 kg

DRUGS (2)
  1. QVAR 40 [Suspect]
     Indication: ASTHMA
     Dosage: 1-2 PUFFS BID PO
     Route: 048
     Dates: start: 20070615, end: 20090705
  2. QVAR 40 [Suspect]
     Indication: ASTHMA
     Dosage: 1-2 PUFFS BID PO
     Route: 048

REACTIONS (1)
  - DERMATITIS ALLERGIC [None]
